FAERS Safety Report 16462404 (Version 2)
Quarter: 2019Q2

REPORT INFORMATION
  Report Type: Spontaneous
  Country: MY (occurrence: MY)
  Receive Date: 20190621
  Receipt Date: 20190626
  Transmission Date: 20190711
  Serious: Yes (Hospitalization, Other)
  Sender: FDA-Public Use
  Company Number: MY-PFIZER INC-2019263282

PATIENT
  Age: 19 Year
  Sex: Female

DRUGS (1)
  1. CELEBREX [Suspect]
     Active Substance: CELECOXIB
     Indication: PROCEDURAL PAIN
     Dosage: 200 MG, 2X/DAY (DOSE INTERVAL OF 12 HOURS)
     Route: 048

REACTIONS (4)
  - Periorbital swelling [Recovering/Resolving]
  - Rash maculo-papular [Recovering/Resolving]
  - Pruritus [Recovering/Resolving]
  - Lip swelling [Recovering/Resolving]
